FAERS Safety Report 8484929-3 (Version None)
Quarter: 2012Q3

REPORT INFORMATION
  Report Type: 
  Country: None (occurrence: None)
  Receive Date: 20120703
  Receipt Date: 20120625
  Transmission Date: 20120928
  Serious: Yes (Other)
  Sender: FDA-Public Use
  Company Number: JP-ASTELLAS-2012JP004345

PATIENT
  Age: 35 Year
  Sex: Male
  Weight: 63 kg

DRUGS (24)
  1. TACROLIMUS [Suspect]
     Dosage: 3 MG, BID
     Route: 048
     Dates: start: 20100623, end: 20100713
  2. PREDNISOLONE SODIUM SUCCINATE INJ [Concomitant]
     Dosage: 15 MG, UNKNOWN/D
     Route: 048
     Dates: start: 20100922, end: 20100930
  3. PREDNISOLONE SODIUM SUCCINATE INJ [Concomitant]
     Dosage: 15 MG, UNKNOWN/D
     Route: 048
     Dates: start: 20110622, end: 20110705
  4. PREDNISOLONE SODIUM SUCCINATE INJ [Concomitant]
     Dosage: 5 MG, UNKNOWN/D
     Route: 048
     Dates: start: 20110824, end: 20110920
  5. PREDNISOLONE SODIUM SUCCINATE INJ [Concomitant]
     Dosage: 20 MG, UNKNOWN/D
     Route: 048
     Dates: start: 20110309, end: 20110621
  6. PREDNISOLONE SODIUM SUCCINATE INJ [Concomitant]
     Dosage: 10 MG, UNKNOWN/D
     Route: 048
     Dates: start: 20110706, end: 20110726
  7. TACROLIMUS [Suspect]
     Dosage: 5 MG, BID
     Route: 048
     Dates: start: 20100603, end: 20100608
  8. TACROLIMUS [Suspect]
     Dosage: 4 MG, BID
     Route: 048
     Dates: start: 20100813, end: 20100816
  9. TACROLIMUS [Suspect]
     Indication: COLITIS ULCERATIVE
     Dosage: 6 MG, BID
     Route: 048
     Dates: start: 20100810, end: 20100812
  10. PENTASA [Concomitant]
     Indication: COLITIS ULCERATIVE
     Dosage: 4000 MG, UNKNOWN/D
     Route: 048
     Dates: end: 20100829
  11. PREDNISOLONE SODIUM SUCCINATE INJ [Concomitant]
     Dosage: 10 MG, UNKNOWN/D
     Route: 048
     Dates: start: 20101001, end: 20101012
  12. PREDNISOLONE SODIUM SUCCINATE INJ [Concomitant]
     Dosage: 7.5 MG, UNKNOWN/D
     Route: 048
     Dates: start: 20110727, end: 20110823
  13. PREDNISOLONE SODIUM SUCCINATE INJ [Concomitant]
     Dosage: 2.5 MG, UNKNOWN/D
     Route: 048
     Dates: start: 20110921, end: 20111025
  14. OMEPRAZOLE [Concomitant]
     Indication: DYSPEPSIA
     Dosage: 20 MG, UNKNOWN/D
     Route: 048
     Dates: start: 20100812, end: 20110111
  15. PREDNISOLONE SODIUM SUCCINATE INJ [Concomitant]
     Dosage: 2.5 MG, UNKNOWN/D
     Route: 048
     Dates: start: 20101027, end: 20110111
  16. PREDNISOLONE SODIUM SUCCINATE INJ [Concomitant]
     Dosage: 30 MG, UNKNOWN/D
     Route: 048
     Dates: start: 20110215, end: 20110308
  17. TACROLIMUS [Suspect]
     Dosage: 4 MG, BID
     Route: 048
     Dates: start: 20100609, end: 20100622
  18. TACROLIMUS [Suspect]
     Dosage: 2 MG, BID
     Route: 048
     Dates: start: 20100820, end: 20100823
  19. PREDNISOLONE SODIUM SUCCINATE INJ [Concomitant]
     Indication: COLITIS ULCERATIVE
     Dosage: 30 MG, UNKNOWN/D
     Route: 048
     Dates: start: 20100825, end: 20100907
  20. SULFAMETHOXAZOLE AND TRIMETHOPRIM [Concomitant]
     Indication: PROPHYLAXIS
     Dosage: 1 DF, UNKNOWN/D
     Route: 048
     Dates: start: 20100608, end: 20100823
  21. IMURAN [Concomitant]
     Indication: COLITIS ULCERATIVE
     Dosage: 50 MG, UNKNOWN/D
     Route: 048
     Dates: start: 20110622, end: 20110705
  22. PREDNISOLONE SODIUM SUCCINATE INJ [Concomitant]
     Dosage: 5 MG, UNKNOWN/D
     Route: 048
     Dates: start: 20101013, end: 20101026
  23. TACROLIMUS [Suspect]
     Dosage: 4 MG, BID
     Route: 048
     Dates: start: 20100714, end: 20100809
  24. PREDNISOLONE SODIUM SUCCINATE INJ [Concomitant]
     Dosage: 20 MG, UNKNOWN/D
     Route: 048
     Dates: start: 20100908, end: 20100921

REACTIONS (2)
  - RENAL DISORDER [None]
  - HEADACHE [None]
